FAERS Safety Report 19828547 (Version 4)
Quarter: 2022Q1

REPORT INFORMATION
  Report Type: Report from Study
  Country: FR (occurrence: FR)
  Receive Date: 20210915
  Receipt Date: 20220311
  Transmission Date: 20220424
  Serious: Yes (Hospitalization)
  Sender: FDA-Public Use
  Company Number: FR-REGENERON PHARMACEUTICALS, INC.-2021-84582

PATIENT

DRUGS (8)
  1. CEMIPLIMAB [Suspect]
     Active Substance: CEMIPLIMAB
     Indication: Squamous cell carcinoma of skin
     Dosage: 350 MG, Q3W
     Route: 042
     Dates: start: 20201207, end: 20210816
  2. AUGMENTIN                          /00756801/ [Concomitant]
     Indication: Discharge
     Dosage: 3 G, QD
     Route: 048
     Dates: start: 20210705
  3. COLCHICINE [Concomitant]
     Active Substance: COLCHICINE
     Indication: Peripheral swelling
     Dosage: 0.5 MG, BID
     Route: 048
     Dates: start: 20210726
  4. DEPAKOTE [Concomitant]
     Active Substance: DIVALPROEX SODIUM
     Indication: Mental disorder
     Dosage: 250 MG, BID
     Route: 048
  5. LEVOTHYROXINE [Concomitant]
     Active Substance: LEVOTHYROXINE
     Indication: Hyperthyroidism
     Dosage: 75 MCG, QD
     Route: 048
     Dates: start: 20210322
  6. BISOPROLOL FUMARATE\HYDROCHLOROTHIAZIDE [Concomitant]
     Active Substance: BISOPROLOL FUMARATE\HYDROCHLOROTHIAZIDE
     Indication: Hypertension
     Dosage: 5 MG, QD
     Route: 048
  7. SMECTA                             /00837601/ [Concomitant]
     Indication: Diarrhoea
     Dosage: NA OTHER BAG, TID
     Route: 048
     Dates: start: 20210726
  8. RACECADOTRIL [Concomitant]
     Active Substance: RACECADOTRIL
     Indication: Diarrhoea
     Dosage: 100 MG, BID
     Route: 048
     Dates: start: 20210726

REACTIONS (1)
  - Lipase increased [Recovered/Resolved]

NARRATIVE: CASE EVENT DATE: 20210906
